FAERS Safety Report 19960216 (Version 2)
Quarter: 2021Q4

REPORT INFORMATION
  Report Type: Spontaneous
  Country: ES (occurrence: ES)
  Receive Date: 20211015
  Receipt Date: 20211018
  Transmission Date: 20220303
  Serious: Yes (Death, Other)
  Sender: FDA-Public Use
  Company Number: ES-SA-SAC20211008001084

PATIENT

DRUGS (1)
  1. LIBTAYO [Suspect]
     Active Substance: CEMIPLIMAB-RWLC
     Indication: Product used for unknown indication
     Dosage: UNK
     Dates: end: 202107

REACTIONS (7)
  - Secondary adrenocortical insufficiency [Fatal]
  - General physical health deterioration [Fatal]
  - Hypophysitis [Fatal]
  - Secondary hypogonadism [Fatal]
  - Blood corticotrophin increased [Fatal]
  - Blood testosterone increased [Fatal]
  - Blood prolactin increased [Fatal]
